FAERS Safety Report 10191710 (Version 1)
Quarter: 2014Q2

REPORT INFORMATION
  Report Type: Spontaneous
  Country: US (occurrence: None)
  Receive Date: 20140522
  Receipt Date: 20140522
  Transmission Date: 20141212
  Serious: Yes (Disabling)
  Sender: FDA-Public Use
  Company Number: None

PATIENT
  Age: 63 Year
  Sex: Female
  Weight: 57.15 kg

DRUGS (19)
  1. PROLIA [Suspect]
     Indication: OSTEOPOROSIS
     Dosage: 60 MG EVERY 6 MONTHS SUBCUTANEOUS
     Route: 058
     Dates: start: 20131217, end: 20131217
  2. ACYCLOVIR [Concomitant]
  3. CLOBETASOL [Concomitant]
  4. CLOBETASOL [Concomitant]
  5. CLONAZEPAM [Concomitant]
  6. DENOSUMAB (PROLIA) [Concomitant]
  7. DEXAMETHASONE [Concomitant]
  8. ERGOCALCIFEROL (VITAMIN D2) [Concomitant]
  9. ESTRADIOL (ESTRACE) [Concomitant]
  10. KETOCONAZOLE [Concomitant]
  11. LEVOTHYROXINE [Concomitant]
  12. LORAZEPAM [Concomitant]
  13. LOTEPREDNOL ETABONATE (LOTEMAX) [Concomitant]
  14. MYCOPHENOLATE MOFETIL [Concomitant]
  15. OMEPRAZOLE [Concomitant]
  16. PREDNISONE [Concomitant]
  17. SULFAMETHOXAZOLE-TRIMETHOPRIM [Concomitant]
  18. TACROLIMUS (PROTOPIC) [Concomitant]
  19. TRAZODONE [Concomitant]

REACTIONS (1)
  - Macular degeneration [None]
